FAERS Safety Report 8518350-6 (Version None)
Quarter: 2012Q3

REPORT INFORMATION
  Report Type: 
  Country: None (occurrence: None)
  Receive Date: 20120718
  Receipt Date: 20120709
  Transmission Date: 20120928
  Serious: Yes (Other)
  Sender: FDA-Public Use
  Company Number: US-ASTRAZENECA-2012SE47599

PATIENT
  Age: 54 Year
  Sex: Female

DRUGS (2)
  1. SEROQUEL [Suspect]
     Indication: BIPOLAR DISORDER
     Route: 048
  2. SEROQUEL [Suspect]
     Route: 048

REACTIONS (6)
  - SYNCOPE [None]
  - THIRST [None]
  - ASTHENIA [None]
  - SOMNOLENCE [None]
  - MALAISE [None]
  - INSOMNIA [None]
